FAERS Safety Report 19298533 (Version 1)
Quarter: 2021Q2

REPORT INFORMATION
  Report Type: Spontaneous
  Country: US (occurrence: US)
  Receive Date: 20210525
  Receipt Date: 20210525
  Transmission Date: 20210717
  Serious: No
  Sender: FDA-Public Use
  Company Number: US-CADILA HEALTHCARE LIMITED-US-ZYDUS-063238

PATIENT

DRUGS (1)
  1. TOPIRAMATE 100 MILLIGRAM TABLET [Suspect]
     Active Substance: TOPIRAMATE
     Indication: ACCIDENTAL EXPOSURE TO PRODUCT BY CHILD
     Dosage: 100 MILLIGRAM, 1?3 TABLETS
     Route: 048
     Dates: start: 20210308, end: 20210308

REACTIONS (4)
  - Vision blurred [Not Recovered/Not Resolved]
  - Accidental exposure to product by child [Recovered/Resolved]
  - Disorientation [Not Recovered/Not Resolved]
  - Coordination abnormal [Not Recovered/Not Resolved]

NARRATIVE: CASE EVENT DATE: 20210308
